FAERS Safety Report 5368905-5 (Version None)
Quarter: 2007Q2

REPORT INFORMATION
  Report Type: 
  Country: None (occurrence: None)
  Receive Date: 20070625
  Receipt Date: 20070510
  Transmission Date: 20071010
  Serious: Yes (Other)
  Sender: FDA-Public Use
  Company Number: US-ASTRAZENECA-2006UW18727

PATIENT
  Age: 16180 Day
  Sex: Female
  Weight: 99.5 kg

DRUGS (1)
  1. CRESTOR [Suspect]
     Indication: HYPERLIPIDAEMIA
     Route: 048
     Dates: start: 20060417, end: 20060630

REACTIONS (2)
  - MYALGIA [None]
  - PAIN [None]
